FAERS Safety Report 10161419 (Version 1)
Quarter: 2014Q2

REPORT INFORMATION
  Report Type: Spontaneous
  Country: MY (occurrence: MY)
  Receive Date: 20140509
  Receipt Date: 20140509
  Transmission Date: 20141212
  Serious: No
  Sender: FDA-Public Use
  Company Number: MY-AMGEN-MYSSP2014033858

PATIENT
  Age: 44 Year
  Sex: Female

DRUGS (2)
  1. ARANESP [Suspect]
     Indication: ANAEMIA
     Dosage: 20 MUG, ONCE WEEKLY
     Route: 042
     Dates: start: 201306
  2. ANTIHYPERTENSIVES [Concomitant]
     Dosage: UNK
     Route: 065

REACTIONS (1)
  - Hypertension [Recovered/Resolved]
